FAERS Safety Report 17493142 (Version 2)
Quarter: 2020Q1

REPORT INFORMATION
  Report Type: Report from Study
  Country: US (occurrence: US)
  Receive Date: 20200304
  Receipt Date: 20200313
  Transmission Date: 20200409
  Serious: Yes (Death)
  Sender: FDA-Public Use
  Company Number: US-ROCHE-2560997

PATIENT
  Age: 68 Year
  Sex: Male

DRUGS (1)
  1. ACTEMRA [Suspect]
     Active Substance: TOCILIZUMAB
     Indication: TEMPORAL ARTERITIS
     Route: 065

REACTIONS (3)
  - Sepsis [Fatal]
  - Cardiac failure chronic [Fatal]
  - Cholecystitis [Fatal]

NARRATIVE: CASE EVENT DATE: 20200301
